FAERS Safety Report 23333567 (Version 1)
Quarter: 2023Q4

REPORT INFORMATION
  Report Type: Report from Study
  Country: US (occurrence: US)
  Receive Date: 20231222
  Receipt Date: 20231222
  Transmission Date: 20240110
  Serious: Yes (Other)
  Sender: FDA-Public Use
  Company Number: US-ABBVIE-5355269

PATIENT
  Sex: Female

DRUGS (4)
  1. VENCLEXTA [Suspect]
     Active Substance: VENETOCLAX
     Indication: Acute myeloid leukaemia
     Dosage: 1TAB/DAY1?FORM STRENGTH - 100 MILLIGRAM
     Route: 048
     Dates: start: 20230530, end: 20230530
  2. VENCLEXTA [Suspect]
     Active Substance: VENETOCLAX
     Indication: Acute myeloid leukaemia
     Dosage: 2TABS/DAY2?FORM STRENGTH - 100 MILLIGRAMS
     Route: 048
     Dates: start: 20230531, end: 20230531
  3. VENCLEXTA [Suspect]
     Active Substance: VENETOCLAX
     Indication: Acute myeloid leukaemia
     Dosage: 4 TABS ONCE DAILY ?LAST ADMIN DATE 2023?FORM STRENGTH - 100 MILLIGRAM
     Route: 048
     Dates: start: 20230601
  4. VENCLEXTA [Suspect]
     Active Substance: VENETOCLAX
     Indication: Acute myeloid leukaemia
     Dosage: TAKE 2 TABLETS BY MOUTH ONCE DAILY WITH FOOD AND?A FULL GLASS OF WATER?FORM STRENGTH - 100 MILLIGRAM
     Route: 048
     Dates: start: 2023

REACTIONS (7)
  - Transfusion [Not Recovered/Not Resolved]
  - Platelet count decreased [Recovered/Resolved]
  - White blood cell count decreased [Recovered/Resolved]
  - Full blood count decreased [Unknown]
  - Haemoglobin decreased [Recovered/Resolved]
  - Asthenia [Not Recovered/Not Resolved]
  - Red blood cell count decreased [Recovered/Resolved]

NARRATIVE: CASE EVENT DATE: 20230101
